FAERS Safety Report 9870277 (Version 1)
Quarter: 2014Q1

REPORT INFORMATION
  Report Type: Spontaneous
  Country: US (occurrence: None)
  Receive Date: 20140204
  Receipt Date: 20140204
  Transmission Date: 20141002
  Serious: Yes (Other)
  Sender: FDA-Public Use
  Company Number: None

PATIENT
  Age: 55 Year
  Sex: Female
  Weight: 70.31 kg

DRUGS (2)
  1. ACYCLOVIR [Suspect]
     Indication: PROPHYLAXIS
     Dosage: 1 PILL  ONCE DAILY TAKEN BY MOUTH
     Route: 048
     Dates: start: 20140112, end: 20140114
  2. ACYCLOVIR [Suspect]
     Indication: HERPES SIMPLEX
     Dosage: 1 PILL  ONCE DAILY TAKEN BY MOUTH
     Route: 048
     Dates: start: 20140112, end: 20140114

REACTIONS (6)
  - Dyspnoea [None]
  - Palpitations [None]
  - Respiratory disorder [None]
  - Product quality issue [None]
  - Product substitution issue [None]
  - Cardiac disorder [None]
